FAERS Safety Report 12371052 (Version 1)
Quarter: 2016Q2

REPORT INFORMATION
  Report Type: Report from Study
  Country: MX (occurrence: MX)
  Receive Date: 20160516
  Receipt Date: 20160516
  Transmission Date: 20160815
  Serious: Yes (Other)
  Sender: FDA-Public Use
  Company Number: PHHY2016MX027582

PATIENT
  Sex: Male
  Weight: 82 kg

DRUGS (1)
  1. ULTIBRO BREEZHALER [Suspect]
     Active Substance: GLYCOPYRRONIUM\INDACATEROL
     Indication: RESPIRATORY TRACT INFLAMMATION
     Dosage: 50 UG, QD (STARTED 1 MONTH AGO)
     Route: 055
     Dates: start: 20160225

REACTIONS (3)
  - Arrhythmia [Unknown]
  - Product use issue [Unknown]
  - Tachycardia [Unknown]
